FAERS Safety Report 15862603 (Version 1)
Quarter: 2018Q4

REPORT INFORMATION
  Report Type: Spontaneous
  Country: US (occurrence: US)
  Receive Date: 20181230
  Receipt Date: 20181230
  Transmission Date: 20190205
  Serious: No
  Sender: FDA-Public Use
  Company Number: None

PATIENT
  Age: 39 Year
  Sex: Female

DRUGS (1)
  1. TENOFOVIR TAB 300MG [Suspect]
     Active Substance: TENOFOVIR
     Route: 048
     Dates: start: 20181218

REACTIONS (3)
  - Muscular weakness [None]
  - Paraesthesia [None]
  - Insomnia [None]

NARRATIVE: CASE EVENT DATE: 20181224
